FAERS Safety Report 19957941 (Version 1)
Quarter: 2021Q4

REPORT INFORMATION
  Report Type: Report from Study
  Country: DE (occurrence: DE)
  Receive Date: 20211015
  Receipt Date: 20211015
  Transmission Date: 20220303
  Serious: Yes (Congenital Anomaly)
  Sender: FDA-Public Use
  Company Number: DE-SA-2019SA094550

PATIENT
  Sex: Female

DRUGS (8)
  1. TERIFLUNOMIDE [Suspect]
     Active Substance: TERIFLUNOMIDE
     Indication: Multiple sclerosis
     Dosage: 14 MG
     Route: 064
     Dates: start: 201712, end: 20180509
  2. TRAMADOL [Concomitant]
     Active Substance: TRAMADOL
     Indication: Pain
     Dosage: 2 DF
     Route: 048
     Dates: start: 201803, end: 201804
  3. IBUPROFEN [Concomitant]
     Active Substance: IBUPROFEN
     Indication: Pain
     Dosage: 600 MG
     Route: 048
  4. BENSERAZIDE\LEVODOPA [Concomitant]
     Active Substance: BENSERAZIDE\LEVODOPA
     Indication: Restless legs syndrome
     Dosage: 100 MG
     Route: 048
     Dates: start: 201801, end: 201805
  5. BACLOFEN [Concomitant]
     Active Substance: BACLOFEN
     Indication: Muscle spasticity
     Dosage: 10 MG
     Route: 048
     Dates: start: 201801, end: 201805
  6. LYRICA [Concomitant]
     Active Substance: PREGABALIN
     Indication: Pain
     Dosage: UNK
     Route: 048
     Dates: start: 201804, end: 201805
  7. LYRICA [Concomitant]
     Active Substance: PREGABALIN
     Dosage: 2 DF, TABLET
     Route: 048
     Dates: start: 20190212
  8. ETORICOXIB [Concomitant]
     Active Substance: ETORICOXIB
     Indication: Pain
     Dosage: 60 MG
     Route: 048
     Dates: start: 201803, end: 201805

REACTIONS (1)
  - Oesophageal atresia [Recovered/Resolved]

NARRATIVE: CASE EVENT DATE: 20190105
